FAERS Safety Report 25539226 (Version 1)
Quarter: 2025Q3

REPORT INFORMATION
  Report Type: Spontaneous
  Country: NZ (occurrence: None)
  Receive Date: 20250709
  Receipt Date: 20250709
  Transmission Date: 20251021
  Serious: Yes (Disabling)
  Sender: FDA-CTU
  Company Number: None

PATIENT
  Age: 41 Year
  Sex: Female
  Weight: 55 kg

DRUGS (3)
  1. ESCITALOPRAM [Suspect]
     Active Substance: ESCITALOPRAM OXALATE
     Indication: Insomnia
     Dates: start: 20071217, end: 20080217
  2. ZOPICLONE [Suspect]
     Active Substance: ZOPICLONE
  3. CLONAZEPAM [Suspect]
     Active Substance: CLONAZEPAM

REACTIONS (10)
  - Insomnia [None]
  - Withdrawal syndrome [None]
  - Paraesthesia [None]
  - Hot flush [None]
  - Asthenia [None]
  - Abdominal distension [None]
  - Neuropathy peripheral [None]
  - Sensory loss [None]
  - Genital hypoaesthesia [None]
  - Feeling abnormal [None]

NARRATIVE: CASE EVENT DATE: 20080101
